FAERS Safety Report 9036183 (Version 1)
Quarter: 2013Q1

REPORT INFORMATION
  Report Type: Spontaneous
  Country: US (occurrence: None)
  Receive Date: 20130117
  Receipt Date: 20130117
  Transmission Date: 20140127
  Serious: Yes (Other)
  Sender: FDA-Public Use
  Company Number: None

PATIENT
  Age: 74 Year
  Sex: Male
  Weight: 81.65 kg

DRUGS (2)
  1. LISINOPRIL [Suspect]
     Dosage: 5 MG  1 A DAY  MOUTH
     Route: 048
  2. RAMIPRIL [Suspect]
     Dosage: 5 MG 1 A DAY  MOUTH
     Route: 048

REACTIONS (4)
  - Arthralgia [None]
  - Back pain [None]
  - Product substitution issue [None]
  - Muscle spasms [None]
